FAERS Safety Report 9439164 (Version 2)
Quarter: 2013Q3

REPORT INFORMATION
  Report Type: Spontaneous
  Country: JP (occurrence: JP)
  Receive Date: 20130802
  Receipt Date: 20130823
  Transmission Date: 20140515
  Serious: Yes (Life-Threatening, Hospitalization)
  Sender: FDA-Public Use
  Company Number: JP-ASTRAZENECA-2013SE56958

PATIENT
  Age: 31409 Day
  Sex: Female
  Weight: 41 kg

DRUGS (20)
  1. NEXIUM [Suspect]
     Indication: GASTROOESOPHAGEAL REFLUX DISEASE
     Route: 048
     Dates: start: 20130701, end: 20130713
  2. NEXIUM [Suspect]
     Indication: PROPHYLAXIS AGAINST GASTROINTESTINAL ULCER
     Route: 048
     Dates: start: 20130701, end: 20130713
  3. LASIX [Suspect]
     Indication: CARDIAC FAILURE
     Route: 048
     Dates: start: 20130703, end: 20130710
  4. LASIX [Suspect]
     Indication: CARDIAC FAILURE
     Route: 042
     Dates: start: 20130709, end: 20130716
  5. AMLODIN [Concomitant]
     Indication: HYPERTENSION
     Dosage: DOSE UNKNOWN
     Route: 048
     Dates: end: 20130628
  6. AMLODIN [Concomitant]
     Indication: HYPERTENSION
     Route: 048
     Dates: start: 20130706
  7. DIOVAN [Concomitant]
     Indication: HYPERTENSION
     Dosage: DOSE UNKNOWN
     Route: 048
     Dates: end: 20130628
  8. DIOVAN [Concomitant]
     Indication: HYPERTENSION
     Route: 048
     Dates: start: 20130706
  9. FLUITRAN [Concomitant]
     Indication: HYPERTENSION
     Route: 048
     Dates: end: 20130628
  10. FLUITRAN [Concomitant]
     Indication: HYPERTENSION
     Dosage: DOSE UNKNOWN
     Route: 048
     Dates: start: 20130706
  11. PREDNISOLONE [Concomitant]
     Dosage: DOSE UNKNOWN
     Route: 065
     Dates: end: 20130628
  12. PREDNISOLONE [Concomitant]
     Dosage: DOSE UNKNOWN
     Route: 065
     Dates: start: 20130706
  13. AZULFIDINE-EN [Concomitant]
     Indication: RHEUMATOID ARTHRITIS
     Route: 048
     Dates: start: 20121129, end: 20130719
  14. MINOMYCIN [Concomitant]
     Indication: URINARY TRACT INFECTION
     Route: 048
     Dates: start: 20130607, end: 20130711
  15. CEFTRIAXONE NA [Concomitant]
     Indication: PNEUMONIA
     Route: 041
     Dates: start: 20130628, end: 20130711
  16. EXFORGE [Concomitant]
     Indication: RHEUMATOID ARTHRITIS
     Route: 048
     Dates: end: 20130705
  17. LOXOPROFEN NA [Concomitant]
     Dosage: DOSE UNKNOWN
     Route: 048
  18. LOXOPROFEN NA [Concomitant]
     Dosage: DOSE UNKNOWN
     Route: 048
     Dates: start: 20130701
  19. SENNOSIDE [Concomitant]
     Dosage: DOSE UNKNOWN
     Route: 048
  20. ZITHROMAC SR [Concomitant]
     Dosage: DOSE UNKNOWN
     Route: 048

REACTIONS (2)
  - Decreased appetite [Recovered/Resolved]
  - Agranulocytosis [Recovered/Resolved]
